FAERS Safety Report 9266122 (Version 1)
Quarter: 2013Q2

REPORT INFORMATION
  Report Type: Spontaneous
  Country: TN (occurrence: TN)
  Receive Date: 20130502
  Receipt Date: 20130502
  Transmission Date: 20140414
  Serious: Yes (Life-Threatening)
  Sender: FDA-Public Use
  Company Number: TN-ROCHE-1220101

PATIENT
  Sex: Female

DRUGS (1)
  1. MABTHERA [Suspect]
     Indication: CENTRAL NERVOUS SYSTEM LYMPHOMA
     Route: 037

REACTIONS (1)
  - Convulsion [Unknown]
